FAERS Safety Report 9970300 (Version 3)
Quarter: 2014Q2

REPORT INFORMATION
  Report Type: Spontaneous
  Country: IT (occurrence: IT)
  Receive Date: 20140306
  Receipt Date: 20140401
  Transmission Date: 20141212
  Serious: Yes (Hospitalization)
  Sender: FDA-Public Use
  Company Number: IT-009507513-1403ITA000280

PATIENT
  Age: 48 Year
  Sex: Male

DRUGS (1)
  1. BCG LIVE [Suspect]
     Indication: BLADDER CANCER
     Dosage: TWELFTH BLADDER INSTILLATION
     Route: 043
     Dates: start: 2010, end: 2010

REACTIONS (1)
  - Skin reaction [Recovered/Resolved]
